FAERS Safety Report 9928439 (Version 2)
Quarter: 2014Q1

REPORT INFORMATION
  Report Type: Spontaneous
  Country: DE (occurrence: None)
  Receive Date: 20140224
  Receipt Date: 20140228
  Transmission Date: 20141002
  Serious: Yes (Other)
  Sender: FDA-Public Use
  Company Number: AUR-APL-2014-01905

PATIENT
  Age: 1 Day
  Sex: Female
  Weight: 3.7 kg

DRUGS (3)
  1. LAMOTRIGINE (LAMOTRIGINE) [Suspect]
     Indication: BIPOLAR DISORDER
     Dosage: 3X100 MG/D, TRANSPLACENTAL
     Route: 064
     Dates: start: 20120806, end: 20130509
  2. CITALOPRAM (CITALOPRAM) [Suspect]
     Indication: DEPRESSION
     Dosage: 30 MG (30MG, 1 IN 1 D)
     Dates: start: 20120806, end: 20130509
  3. VELNATAL PLUS (VELNATAL PLUS) [Concomitant]

REACTIONS (5)
  - Foetal exposure during pregnancy [None]
  - Neonatal infection [None]
  - Feeding disorder neonatal [None]
  - Somnolence [None]
  - Foetal exposure during pregnancy [None]
